FAERS Safety Report 15816239 (Version 2)
Quarter: 2025Q4

REPORT INFORMATION
  Report Type: Spontaneous
  Country: US (occurrence: US)
  Receive Date: 20190113
  Receipt Date: 20251126
  Transmission Date: 20260118
  Serious: Yes (Other)
  Sender: COOPERSURGICAL
  Company Number: US-COOPERSURGICAL, INC.-US-2018CPS032749

PATIENT

DRUGS (4)
  1. PARAGARD T 380A [Suspect]
     Active Substance: COPPER
     Indication: Contraception
     Dosage: UNK
     Route: 015
     Dates: start: 20150407, end: 20190521
  2. LEVOTHYROXINE [Concomitant]
     Active Substance: LEVOTHYROXINE
     Dosage: UNK
     Dates: start: 199001
  3. MORPHINE [Concomitant]
     Active Substance: MORPHINE
     Indication: Pain
     Dosage: UNK
  4. ROBAXIN [Suspect]
     Active Substance: METHOCARBAMOL
     Indication: Muscle spasms
     Dosage: UNK

REACTIONS (30)
  - Salpingectomy [Recovered/Resolved]
  - Surgery [Not Recovered/Not Resolved]
  - Hysterectomy [Recovered/Resolved]
  - Reproductive complication associated with device [Not Recovered/Not Resolved]
  - Device breakage [Recovered/Resolved]
  - Foreign body in reproductive tract [Recovered/Resolved]
  - Complication of device removal [Recovered/Resolved]
  - Embedded device [Recovered/Resolved]
  - Off label use [Unknown]
  - Uterine inflammation [Recovered/Resolved]
  - Emotional distress [Unknown]
  - Anxiety [Unknown]
  - Anhedonia [Unknown]
  - Dyspnoea [Unknown]
  - Abdominal pain upper [Unknown]
  - Procedural pain [Recovered/Resolved]
  - Uterine fibrosis [Recovered/Resolved]
  - Device material issue [Recovered/Resolved]
  - Cervix inflammation [Recovered/Resolved]
  - Abdominal distension [Unknown]
  - Pain [Unknown]
  - Menstruation irregular [Recovered/Resolved]
  - Intermenstrual bleeding [Recovered/Resolved]
  - Discomfort [Unknown]
  - Pelvic pain [Recovered/Resolved]
  - Heavy menstrual bleeding [Recovered/Resolved]
  - Device dislocation [Recovered/Resolved]
  - Device expulsion [Recovered/Resolved]
  - Abnormal uterine bleeding [Recovered/Resolved]
  - Abdominal pain [Unknown]

NARRATIVE: CASE EVENT DATE: 20150407
